FAERS Safety Report 6456657-7 (Version None)
Quarter: 2009Q4

REPORT INFORMATION
  Report Type: 
  Country: None (occurrence: None)
  Receive Date: 20091125
  Receipt Date: 20091118
  Transmission Date: 20100525
  Serious: Yes (Hospitalization)
  Sender: FDA-Public Use
  Company Number: NZ-ABBOTT-09P-118-0606752-00

PATIENT
  Sex: Male
  Weight: 105 kg

DRUGS (8)
  1. HUMIRA [Suspect]
     Indication: COLITIS ULCERATIVE
     Route: 058
     Dates: start: 20081224, end: 20091020
  2. HYDROCORTISONE [Concomitant]
     Indication: ECZEMA
  3. PARACETAMOL [Concomitant]
     Indication: COLITIS ULCERATIVE
  4. PARACETAMOL [Concomitant]
     Indication: PAIN
  5. VENTOLIN [Concomitant]
     Indication: ASTHMA
  6. AMOXICILLIN [Concomitant]
     Indication: UPPER RESPIRATORY TRACT INFECTION
     Dates: start: 20090706, end: 20090716
  7. CEFACLOR [Concomitant]
     Indication: UPPER RESPIRATORY TRACT INFECTION
     Dates: start: 20090717, end: 20090726
  8. LACTULOSE [Concomitant]
     Indication: CONSTIPATION
     Dates: start: 20090805, end: 20090816

REACTIONS (1)
  - COLITIS ULCERATIVE [None]
